FAERS Safety Report 8516105 (Version 2)
Quarter: 2013Q1

REPORT INFORMATION
  Report Type: Spontaneous
  Country: US (occurrence: US)
  Receive Date: 20120417
  Receipt Date: 20130114
  Transmission Date: 20140127
  Serious: No
  Sender: FDA-Public Use
  Company Number: US-ASTRAZENECA-2011SE77384

PATIENT
  Age: 69 Year
  Sex: Female

DRUGS (7)
  1. NEXIUM [Suspect]
     Route: 048
  2. SPIRONOLACTONE [Concomitant]
  3. PRENATAL MVI [Concomitant]
  4. BLACK COHOSH [Concomitant]
  5. FISH OIL [Concomitant]
  6. TYLENOL [Concomitant]
     Indication: ARTHRITIS
  7. POTASSIUM [Concomitant]

REACTIONS (12)
  - Gastrooesophageal reflux disease [Unknown]
  - Barrett^s oesophagus [Unknown]
  - Erosive oesophagitis [Unknown]
  - Pain [Unknown]
  - Irritability [Unknown]
  - Sinus congestion [Unknown]
  - Rhinorrhoea [Unknown]
  - Oropharyngeal pain [Unknown]
  - Diarrhoea [Unknown]
  - Local swelling [Unknown]
  - Local swelling [Unknown]
  - Intentional drug misuse [Unknown]
